FAERS Safety Report 8770920 (Version 1)
Quarter: 2012Q4

REPORT INFORMATION
  Report Type: 
  Country: US (occurrence: US)
  Receive Date: 20120906
  Receipt Date: 20120906
  Transmission Date: 20130627
  Serious: Yes (Hospitalization)
  Sender: FDA-Public Use
  Company Number: US-BAYER-2012-091144

PATIENT
  Age: 24 Year
  Sex: Female
  Weight: 115.19 kg

DRUGS (6)
  1. OCELLA [Suspect]
  2. K-DUR [Concomitant]
     Dosage: 20 mEq, daily
  3. LOTREL [Concomitant]
     Dosage: 10/20mg daily
  4. TOPROL XL [Concomitant]
     Dosage: 10 mg, daily
     Route: 048
  5. NAPROXEN [Concomitant]
     Dosage: 500 mg, UNK
     Dates: start: 20100814
  6. TRAMADOL [Concomitant]
     Dosage: 50 mg, UNK
     Dates: start: 20100712

REACTIONS (2)
  - Deep vein thrombosis [None]
  - Pulmonary embolism [None]
